FAERS Safety Report 5733159-4 (Version None)
Quarter: 2008Q2

REPORT INFORMATION
  Report Type: 
  Country: None (occurrence: None)
  Receive Date: 20080509
  Receipt Date: 20080429
  Transmission Date: 20081010
  Serious: Yes (Other)
  Sender: FDA-Public Use
  Company Number: US-ABBOTT-08P-163-0449503-00

PATIENT
  Sex: Male
  Weight: 76.272 kg

DRUGS (1)
  1. HUMIRA [Suspect]
     Indication: ANKYLOSING SPONDYLITIS
     Dosage: 40MG EVERY TWO WEEKS
     Route: 058
     Dates: start: 20080424

REACTIONS (2)
  - CONVULSION [None]
  - FATIGUE [None]
